FAERS Safety Report 11137106 (Version 1)
Quarter: 2015Q2

REPORT INFORMATION
  Report Type: Spontaneous
  Country: US (occurrence: US)
  Receive Date: 20150526
  Receipt Date: 20150526
  Transmission Date: 20150821
  Serious: No
  Sender: FDA-Public Use
  Company Number: US-MALLINCKRODT-T201501244

PATIENT
  Age: 55 Year
  Sex: Female

DRUGS (2)
  1. IVIGLOB EX [Suspect]
     Active Substance: HUMAN IMMUNOGLOBULIN G
     Indication: PRODUCT USED FOR UNKNOWN INDICATION
     Dosage: 7 VIALS, ONCE
     Route: 065
     Dates: start: 20150211, end: 20150211
  2. H.P. ACTHAR [Suspect]
     Active Substance: CORTICOTROPIN
     Indication: POLYMYOSITIS
     Dosage: 80 U, TWICE A WEEK (ON TUESDAYS AND FRIDAYS)
     Route: 058
     Dates: start: 20150106

REACTIONS (2)
  - Injection site pruritus [Recovering/Resolving]
  - Headache [Unknown]

NARRATIVE: CASE EVENT DATE: 2015
